FAERS Safety Report 18057708 (Version 1)
Quarter: 2020Q3

REPORT INFORMATION
  Report Type: Spontaneous
  Country: CA (occurrence: CA)
  Receive Date: 20200722
  Receipt Date: 20200722
  Transmission Date: 20201103
  Serious: Yes (Hospitalization)
  Sender: FDA-Public Use
  Company Number: CA-BAUSCH-BL-2020-020649

PATIENT
  Age: 32 Year
  Sex: Male

DRUGS (3)
  1. WARFARIN [Concomitant]
     Active Substance: WARFARIN
     Indication: PRODUCT USED FOR UNKNOWN INDICATION
     Dates: start: 202002
  2. CORTIMENT (BUDESONIDE) PROLONGED?RELEASE TABLET [Suspect]
     Active Substance: BUDESONIDE
     Indication: COLITIS ULCERATIVE
     Dosage: AT 8:30 PM THAT NIGHT
     Route: 048
     Dates: start: 20200708, end: 20200708
  3. CORTIMENT (BUDESONIDE) PROLONGED?RELEASE TABLET [Suspect]
     Active Substance: BUDESONIDE
     Dosage: SECOND DOSE AT 2:30PM
     Route: 048
     Dates: start: 20200709, end: 202007

REACTIONS (7)
  - Abdominal pain lower [Recovered/Resolved]
  - Muscle spasms [Recovered/Resolved]
  - Headache [Recovered/Resolved]
  - Product dispensing error [Unknown]
  - Insomnia [Recovered/Resolved]
  - Drug ineffective [Recovered/Resolved]
  - Dry mouth [Recovered/Resolved]

NARRATIVE: CASE EVENT DATE: 20200708
